FAERS Safety Report 8037886-8 (Version None)
Quarter: 2012Q1

REPORT INFORMATION
  Report Type: 
  Country: None (occurrence: None)
  Receive Date: 20120111
  Receipt Date: 20120105
  Transmission Date: 20120608
  Serious: Yes (Hospitalization)
  Sender: FDA-Public Use
  Company Number: CA-ASTRAZENECA-2012SE01186

PATIENT
  Age: 56 Year
  Sex: Male

DRUGS (12)
  1. GRAVOL TAB [Concomitant]
  2. SYMBICORT [Suspect]
     Dosage: 200 MCG 2 PUFFS BID (NOT EVERYDAY, ONLY WHEN NEEDED)
     Route: 055
  3. ZOMIG-ZMT [Suspect]
     Route: 048
     Dates: start: 20080101
  4. AZITHROMYCIN [Concomitant]
  5. WARFARIN SODIUM [Concomitant]
  6. AVELOX [Concomitant]
  7. VALTREX [Concomitant]
  8. PANTOPRAZOLE SODIUM [Concomitant]
  9. ZOPICLONE [Concomitant]
  10. BACTRIM [Concomitant]
  11. PROPRANOLOL [Concomitant]
  12. PANCREASE ENZYME [Concomitant]

REACTIONS (1)
  - DEEP VEIN THROMBOSIS [None]
